FAERS Safety Report 6354190-4 (Version None)
Quarter: 2009Q3

REPORT INFORMATION
  Report Type: 
  Country: None (occurrence: None)
  Receive Date: 20090909
  Receipt Date: 20090825
  Transmission Date: 20100115
  Serious: No
  Sender: FDA-Public Use
  Company Number: DSU-2009-01784

PATIENT
  Age: 84 Year
  Sex: Female

DRUGS (1)
  1. WELCHOL [Suspect]
     Indication: DRUG USE FOR UNKNOWN INDICATION
     Dosage: 3750 MG (1875 MG, BID), PER ORAL
     Route: 048

REACTIONS (1)
  - DYSPHAGIA [None]
